FAERS Safety Report 24108319 (Version 1)
Quarter: 2024Q3

REPORT INFORMATION
  Report Type: Report from Study
  Country: US (occurrence: None)
  Receive Date: 20240718
  Receipt Date: 20240718
  Transmission Date: 20241017
  Serious: Yes (Other)
  Sender: ASTRAZENECA
  Company Number: 2021A475087

PATIENT
  Age: 22690 Day
  Sex: Male

DRUGS (2)
  1. BRILINTA [Suspect]
     Active Substance: TICAGRELOR
     Route: 048
  2. ASPIRIN [Concomitant]
     Active Substance: ASPIRIN
     Dosage: ASPIRIN 81MG, 1 TABLET ONCE DAILY

REACTIONS (3)
  - Cerebrovascular accident [Recovered/Resolved]
  - Somnolence [Unknown]
  - Hypotension [Unknown]

NARRATIVE: CASE EVENT DATE: 20210320
